FAERS Safety Report 18626701 (Version 1)
Quarter: 2020Q4

REPORT INFORMATION
  Report Type: Spontaneous
  Country: US (occurrence: US)
  Receive Date: 20201217
  Receipt Date: 20201217
  Transmission Date: 20210114
  Serious: No
  Sender: FDA-Public Use
  Company Number: US-009507513-2012USA007094

PATIENT
  Sex: Female

DRUGS (2)
  1. ZOCOR [Suspect]
     Active Substance: SIMVASTATIN
     Dosage: UNK
     Route: 065
  2. GLYCOPYRROLATE. [Suspect]
     Active Substance: GLYCOPYRROLATE
     Dosage: UNK, EFLOW
     Route: 055
     Dates: start: 20201013

REACTIONS (2)
  - Anxiety [Unknown]
  - Cough [Unknown]

NARRATIVE: CASE EVENT DATE: 2020
